FAERS Safety Report 8326637-5 (Version None)
Quarter: 2012Q2

REPORT INFORMATION
  Report Type: 
  Country: None (occurrence: None)
  Receive Date: 20120501
  Receipt Date: 20120423
  Transmission Date: 20120825
  Serious: Yes (Other)
  Sender: FDA-Public Use
  Company Number: CA-PURDUE-CAN-2012-0002931

PATIENT
  Sex: Male

DRUGS (1)
  1. OXYCONTIN [Suspect]
     Indication: PAIN
     Dosage: 60 MG, DAILY
     Route: 065
     Dates: start: 20090101

REACTIONS (15)
  - SUICIDAL IDEATION [None]
  - VOMITING [None]
  - CRYING [None]
  - DRUG WITHDRAWAL SYNDROME [None]
  - WEIGHT DECREASED [None]
  - HYPERHIDROSIS [None]
  - MUSCLE SPASMS [None]
  - DIARRHOEA [None]
  - DRUG DEPENDENCE [None]
  - AGGRESSION [None]
  - MOOD ALTERED [None]
  - INTENTIONAL DRUG MISUSE [None]
  - DECREASED APPETITE [None]
  - TREMOR [None]
  - HYPOPHAGIA [None]
